FAERS Safety Report 6745725-8 (Version None)
Quarter: 2010Q2

REPORT INFORMATION
  Report Type: 
  Country: None (occurrence: None)
  Receive Date: 20100528
  Receipt Date: 20100520
  Transmission Date: 20101027
  Serious: Yes (Hospitalization)
  Sender: FDA-Public Use
  Company Number: FR-KINGPHARMUSA00001-K201000628

PATIENT
  Age: 74 Year
  Sex: Male

DRUGS (5)
  1. ALTACE [Suspect]
     Indication: HYPERTENSION
     Dosage: 5 MG, QD
     Route: 048
     Dates: end: 20091201
  2. ZOLEDRONIC ACID [Concomitant]
     Dosage: UNK
     Dates: start: 20091201, end: 20091201
  3. METOPROLOL [Concomitant]
  4. NALOXONE HYDROCHLORIDE W/TILIDINE HYDROCHLO. [Concomitant]
  5. NOVAMINSULFON [Concomitant]

REACTIONS (7)
  - BRONCHITIS [None]
  - DEHYDRATION [None]
  - DIARRHOEA [None]
  - GASTROINTESTINAL INFECTION [None]
  - GENERAL PHYSICAL HEALTH DETERIORATION [None]
  - HYPONATRAEMIA [None]
  - NAUSEA [None]
